FAERS Safety Report 20305977 (Version 1)
Quarter: 2022Q1

REPORT INFORMATION
  Report Type: Spontaneous
  Country: US (occurrence: None)
  Receive Date: 20220106
  Receipt Date: 20220106
  Transmission Date: 20220423
  Serious: Yes (unspecified)
  Sender: FDA-Public Use
  Company Number: None

PATIENT
  Age: 50 Year
  Sex: Female

DRUGS (2)
  1. INGREZZA [Suspect]
     Active Substance: VALBENAZINE
     Indication: Movement disorder
     Dosage: FREQUENCY : DAILY;?
     Route: 048
     Dates: start: 20210929
  2. PILOCARPINE [Concomitant]
     Active Substance: PILOCARPINE

REACTIONS (1)
  - Fall [None]

NARRATIVE: CASE EVENT DATE: 20211010
